FAERS Safety Report 18413500 (Version 6)
Quarter: 2020Q4

REPORT INFORMATION
  Report Type: Spontaneous
  Country: MX (occurrence: MX)
  Receive Date: 20201021
  Receipt Date: 20201204
  Transmission Date: 20210114
  Serious: Yes (Hospitalization, Other)
  Sender: FDA-Public Use
  Company Number: MX-ROCHE-2698934

PATIENT
  Age: 5 Year
  Sex: Male
  Weight: 21 kg

DRUGS (7)
  1. HEMLIBRA [Suspect]
     Active Substance: EMICIZUMAB-KXWH
     Dosage: FREQUENCY WAS DETAILED AT THE NARRATIVE TAB?INJECTABLE 60MG/0,4ML LOAD DOSE WEEK 4
     Route: 065
     Dates: start: 20200810
  2. HEMLIBRA [Suspect]
     Active Substance: EMICIZUMAB-KXWH
     Dosage: FREQUENCY WAS DETAILED AT THE NARRATIVE TAB?INJECTABLE 60MG/0,4ML WEEK 4 LOAD DOSE WEEK 4
     Route: 065
     Dates: start: 20200813
  3. HEMLIBRA [Suspect]
     Active Substance: EMICIZUMAB-KXWH
     Dosage: WEEK 2
     Route: 065
     Dates: start: 20200731
  4. HEMLIBRA [Suspect]
     Active Substance: EMICIZUMAB-KXWH
     Dosage: FREQUENCY WAS DETAILED AT THE NARRATIVE TAB?INJECTABLE 60MG/0,4ML WEEK 5  MAINTENANCE DOSIS
     Route: 065
     Dates: start: 20200820
  5. HEMLIBRA [Suspect]
     Active Substance: EMICIZUMAB-KXWH
     Dosage: FREQUENCY WAS DETAILED AT THE NARRATIVE TAB?INJECTABLE 60MG/0,4ML WEEK 7  MAINTENANCE DOSIS
     Route: 065
     Dates: start: 20200903
  6. HEMLIBRA [Suspect]
     Active Substance: EMICIZUMAB-KXWH
     Dosage: FREQUENCY WAS DETAILED AT THE NARRATIVE TAB?INJECTABLE 60MG/0,4ML WEEK 12  MAINTENANCE DOSIS
     Route: 065
     Dates: start: 20201008
  7. HEMLIBRA [Suspect]
     Active Substance: EMICIZUMAB-KXWH
     Indication: HAEMOPHILIA A WITH ANTI FACTOR VIII
     Dosage: WEEK 1
     Route: 065
     Dates: start: 20200724

REACTIONS (3)
  - Haematoma [Unknown]
  - Cerebral haemorrhage [Recovering/Resolving]
  - Intentional self-injury [Unknown]

NARRATIVE: CASE EVENT DATE: 20201015
